FAERS Safety Report 10682000 (Version 1)
Quarter: 2014Q4

REPORT INFORMATION
  Report Type: Spontaneous
  Country: FR (occurrence: FR)
  Receive Date: 20141230
  Receipt Date: 20141230
  Transmission Date: 20150529
  Serious: Yes (Hospitalization)
  Sender: FDA-Public Use
  Company Number: PHHY2014FR168426

PATIENT
  Sex: Female

DRUGS (3)
  1. VOLTARENE [Suspect]
     Active Substance: DICLOFENAC SODIUM
     Indication: ARTHRALGIA
     Dosage: 1 DF, QD
     Route: 048
     Dates: start: 2010
  2. KARDEGIC [Suspect]
     Active Substance: ASPIRIN LYSINE
     Indication: VENOUS THROMBOSIS
     Dosage: 1 DF, QD
     Route: 048
     Dates: start: 2012, end: 20141108
  3. INNOHEP [Suspect]
     Active Substance: TINZAPARIN SODIUM
     Indication: VENOUS THROMBOSIS
     Dosage: 0.7 ML, QD
     Route: 058
     Dates: start: 20141106, end: 20141118

REACTIONS (2)
  - Anaemia [Recovered/Resolved]
  - Muscle haemorrhage [Recovered/Resolved]
